FAERS Safety Report 18349047 (Version 1)
Quarter: 2020Q4

REPORT INFORMATION
  Report Type: Spontaneous
  Country: US (occurrence: US)
  Receive Date: 20201006
  Receipt Date: 20201006
  Transmission Date: 20210114
  Serious: No
  Sender: FDA-Public Use
  Company Number: None

PATIENT
  Age: 71 Year
  Sex: Female
  Weight: 45.4 kg

DRUGS (2)
  1. CEFOXITIN [Suspect]
     Active Substance: CEFOXITIN SODIUM
     Indication: PANCREAS INFECTION
     Dosage: ?          OTHER FREQUENCY:EVERY 8 HOURS;?
     Route: 041
     Dates: start: 20201002, end: 20201003
  2. MEROPENEM. [Suspect]
     Active Substance: MEROPENEM
     Indication: PANCREAS INFECTION
     Dosage: ?          OTHER FREQUENCY:EVERY 8 HOURS;?
     Route: 041
     Dates: start: 20201002, end: 20201003

REACTIONS (1)
  - Drug hypersensitivity [None]

NARRATIVE: CASE EVENT DATE: 20201003
